FAERS Safety Report 5843811-8 (Version None)
Quarter: 2008Q3

REPORT INFORMATION
  Report Type: 
  Country: None (occurrence: None)
  Receive Date: 20080813
  Receipt Date: 20080730
  Transmission Date: 20090109
  Serious: Yes (Other)
  Sender: FDA-Public Use
  Company Number: PHEH2006US02520

PATIENT
  Sex: Male
  Weight: 82.54 kg

DRUGS (26)
  1. AREDIA [Suspect]
     Indication: METASTASES TO BONE
     Dosage: UNK
     Route: 042
     Dates: start: 19990601, end: 20040701
  2. AREDIA [Suspect]
     Indication: HYPERCALCAEMIA
  3. ZOMETA [Suspect]
  4. VELCADE [Suspect]
  5. OXYCONTIN [Concomitant]
     Indication: PAIN
     Dosage: 120 MG, QD
  6. OXYCODONE HCL [Concomitant]
     Dosage: 5 MG, PRN
  7. PRILOSEC [Concomitant]
     Dosage: 40 MG, QD
     Route: 048
  8. TYLENOL (CAPLET) [Concomitant]
     Dosage: 1300 MG, QAM
  9. THALOMID [Concomitant]
     Dosage: 100 MG, QPM
     Dates: start: 20030101, end: 20050101
  10. COUMADIN [Concomitant]
     Dosage: 1 MG, QD
  11. COUMADIN [Concomitant]
     Dosage: 1 MG, QD
     Route: 048
  12. LASIX [Concomitant]
     Dosage: 40 MG, UNK
  13. DEXAMETHASONE [Concomitant]
     Dosage: 4 MG, 10 TABLETS EVERY TUESDAY
  14. DOCUSATE SODIUM [Concomitant]
     Dosage: 100 MG, UNK
  15. HUMALOG [Concomitant]
     Dosage: AS DIRECTED DURING STEROIDS
  16. MORPHINE [Concomitant]
     Indication: PAIN
  17. CYMBALTA [Concomitant]
     Dosage: 60 MG, QD
  18. BETA BLOCKING AGENTS [Concomitant]
     Indication: BLOOD PRESSURE MANAGEMENT
     Dosage: UNK
     Dates: start: 20070401
  19. NEURONTIN [Concomitant]
     Dosage: 600 MG, QD
  20. MULTI-VITAMINS [Concomitant]
     Dosage: UNK
  21. VITAMIN B6 [Concomitant]
     Dosage: UNK
  22. IRON [Concomitant]
     Dosage: 65 MG, QD
  23. UROXATRAL [Concomitant]
     Dosage: 10 MG, QOD
  24. CEPHALEXIN [Concomitant]
     Dosage: 500 MG, QD
  25. INSULIN [Concomitant]
  26. OXYCODONE HCL [Concomitant]
     Dosage: 5 MG, PRN

REACTIONS (50)
  - ACTINOMYCOSIS [None]
  - ALVEOLOPLASTY [None]
  - ANAEMIA [None]
  - BIOPSY [None]
  - BONE DEBRIDEMENT [None]
  - BONE DISORDER [None]
  - CATARACT [None]
  - CATARACT OPERATION [None]
  - COMPRESSION FRACTURE [None]
  - DENTAL FISTULA [None]
  - EMOTIONAL DISTRESS [None]
  - FOREIGN BODY IN EYE [None]
  - GLARE [None]
  - HYPERBARIC OXYGEN THERAPY [None]
  - HYPERGLYCAEMIA [None]
  - HYPOAESTHESIA ORAL [None]
  - IMPAIRED HEALING [None]
  - INJURY [None]
  - INTRAOCULAR LENS IMPLANT [None]
  - JAW DISORDER [None]
  - JAW OPERATION [None]
  - KYPHOSIS [None]
  - LUMBAR VERTEBRAL FRACTURE [None]
  - MUSCLE SPASMS [None]
  - NEUROPATHY PERIPHERAL [None]
  - OEDEMA MOUTH [None]
  - ORAL DISCOMFORT [None]
  - ORAL PAIN [None]
  - OSTEOMYELITIS [None]
  - OSTEONECROSIS [None]
  - OSTEOPENIA [None]
  - OSTEORADIONECROSIS [None]
  - OSTEOSCLEROSIS [None]
  - PAIN [None]
  - PAIN IN JAW [None]
  - PARESIS [None]
  - PATHOLOGICAL FRACTURE [None]
  - POLYNEUROPATHY [None]
  - POSTERIOR CAPSULE OPACIFICATION [None]
  - POSTERIOR CAPSULOTOMY [None]
  - PRIMARY SEQUESTRUM [None]
  - PURULENT DISCHARGE [None]
  - SCLEROMALACIA [None]
  - SPINAL DEFORMITY [None]
  - SQUAMOUS CELL CARCINOMA [None]
  - STAPHYLOCOCCAL INFECTION [None]
  - TOOTH EXTRACTION [None]
  - TYPE 2 DIABETES MELLITUS [None]
  - VISION BLURRED [None]
  - VISUAL ACUITY REDUCED [None]
